FAERS Safety Report 4615033-X (Version None)
Quarter: 2005Q1

REPORT INFORMATION
  Report Type: 
  Country: None (occurrence: None)
  Receive Date: 20050315
  Receipt Date: 20050303
  Transmission Date: 20050727
  Serious: Yes (Other)
  Sender: FDA-Public Use
  Company Number: 2005040448

PATIENT
  Age: 79 Year
  Sex: Female

DRUGS (8)
  1. MACUGEN [Suspect]
     Indication: MACULAR DEGENERATION
     Dosage: (1 IN 6 WK), INTRAVENOUS
     Route: 042
     Dates: start: 20050224
  2. ATORVASTATIN CALCIUM [Concomitant]
  3. NIFEDIPINE [Concomitant]
  4. CLONIDINE [Concomitant]
  5. ACETYLSALICYLIC ACID (ACETYLSALICYLIC ACID) [Concomitant]
  6. FUROSEMIDE [Concomitant]
  7. POTASSIUM ACETATE [Concomitant]
  8. CLONIDINE [Concomitant]

REACTIONS (11)
  - ARTERIOSCLEROTIC RETINOPATHY [None]
  - CATARACT [None]
  - EYE PAIN [None]
  - HYPERSENSITIVITY [None]
  - INTERMEDIATE UVEITIS [None]
  - IRIDOCYCLITIS [None]
  - MYDRIASIS [None]
  - OCULAR DISCOMFORT [None]
  - PUPILLARY DEFORMITY [None]
  - VISUAL DISTURBANCE [None]
  - VITREOUS DETACHMENT [None]
